FAERS Safety Report 5097236-6 (Version None)
Quarter: 2006Q3

REPORT INFORMATION
  Report Type: 
  Country: None (occurrence: None)
  Receive Date: 20060906
  Receipt Date: 20060828
  Transmission Date: 20061208
  Serious: Yes (Other)
  Sender: FDA-Public Use
  Company Number: 2006AC01597

PATIENT
  Age: 76 Year
  Sex: Female

DRUGS (5)
  1. SEROQUEL [Suspect]
     Route: 048
     Dates: start: 20060401
  2. DEPRAX [Interacting]
     Route: 048
     Dates: start: 20050101
  3. ORFIDAL WYETH [Concomitant]
     Route: 048
     Dates: start: 20050101
  4. DISTRANEURINE [Concomitant]
     Route: 048
     Dates: start: 20050101
  5. EBIXA [Concomitant]
     Indication: DEMENTIA ALZHEIMER'S TYPE
     Route: 048
     Dates: start: 20050101

REACTIONS (2)
  - DRUG INTERACTION [None]
  - DYSKINESIA [None]
